FAERS Safety Report 8600889-6 (Version None)
Quarter: 2012Q3

REPORT INFORMATION
  Report Type: 
  Country: None (occurrence: None)
  Receive Date: 20120817
  Receipt Date: 20120808
  Transmission Date: 20120928
  Serious: Yes (Hospitalization)
  Sender: FDA-Public Use
  Company Number: CA-JNJFOC-20120803720

PATIENT
  Sex: Female
  Weight: 22 kg

DRUGS (2)
  1. REMICADE [Suspect]
     Route: 042
  2. REMICADE [Suspect]
     Indication: CROHN'S DISEASE
     Dosage: THIRD LOADING DOSE
     Route: 042
     Dates: start: 20120701

REACTIONS (3)
  - ENTERAL NUTRITION [None]
  - PAIN [None]
  - VOMITING [None]
